FAERS Safety Report 6743821-2 (Version None)
Quarter: 2010Q2

REPORT INFORMATION
  Report Type: 
  Country: None (occurrence: None)
  Receive Date: 20100527
  Receipt Date: 20100308
  Transmission Date: 20101027
  Serious: No
  Sender: FDA-Public Use
  Company Number: US-KINGPHARMUSA00001-K201000282

PATIENT
  Sex: Female
  Weight: 79.365 kg

DRUGS (2)
  1. FLECTOR [Suspect]
     Indication: ARTHRALGIA
     Dosage: UNK PATCH, UNK
     Route: 061
     Dates: start: 20100301, end: 20100301
  2. ANALGESICS [Concomitant]
     Indication: PAIN
     Dosage: UNK

REACTIONS (3)
  - APPLICATION SITE BURN [None]
  - APPLICATION SITE IRRITATION [None]
  - APPLICATION SITE REACTION [None]
